FAERS Safety Report 7660327-7 (Version None)
Quarter: 2011Q3

REPORT INFORMATION
  Report Type: 
  Country: None (occurrence: None)
  Receive Date: 20110805
  Receipt Date: 20110725
  Transmission Date: 20111222
  Serious: Yes (Hospitalization, Other)
  Sender: FDA-Public Use
  Company Number: US-ELI_LILLY_AND_COMPANY-US201107007309

PATIENT
  Sex: Male

DRUGS (9)
  1. METFORMIN HCL [Concomitant]
     Dosage: UNK
  2. HUMULIN 70/30 [Suspect]
     Indication: DIABETES MELLITUS
     Dosage: 56U IN AM; 76U IN PM
  3. GLIPIZIDE [Concomitant]
     Dosage: UNK
  4. PRAVASTATIN [Concomitant]
     Dosage: UNK
  5. COREG [Concomitant]
     Dosage: 25 MG, BID
  6. ANALGESICS [Concomitant]
     Dosage: UNK
  7. HUMULIN 70/30 [Suspect]
     Dosage: 56U IN AM; 76U IN PM
  8. LOSARTAN POTASSIUM [Concomitant]
     Dosage: 100 MG, QD
  9. NEURONTIN [Concomitant]
     Dosage: UNK

REACTIONS (6)
  - OESOPHAGEAL INJURY [None]
  - ARTHROPOD STING [None]
  - PNEUMONIA [None]
  - CARDIAC FLUTTER [None]
  - TACHYCARDIA [None]
  - CORONARY ARTERY OCCLUSION [None]
